FAERS Safety Report 8624364-8 (Version None)
Quarter: 2012Q3

REPORT INFORMATION
  Report Type: 
  Country: None (occurrence: None)
  Receive Date: 20120827
  Receipt Date: 20120821
  Transmission Date: 20120928
  Serious: Yes (Life-Threatening, Hospitalization, Other)
  Sender: FDA-Public Use
  Company Number: JP-CELGENEUS-087-50794-12020931

PATIENT
  Age: 74 Year
  Sex: Female
  Weight: 50 kg

DRUGS (13)
  1. MAXIPIME [Concomitant]
     Route: 065
     Dates: start: 20110908, end: 20110910
  2. PURSENNID [Concomitant]
     Route: 065
  3. VIDAZA [Suspect]
     Indication: MYELODYSPLASTIC SYNDROME
     Dosage: 75 MILLIGRAM/SQ. METER
     Route: 041
     Dates: start: 20110907, end: 20110912
  4. VIDAZA [Suspect]
     Dosage: 37.5 MILLIGRAM/SQ. METER
     Route: 041
     Dates: start: 20111021, end: 20111025
  5. AMOBAN [Concomitant]
     Route: 065
  6. DEPAS [Concomitant]
     Route: 065
  7. NEUTROGIN [Concomitant]
     Route: 065
     Dates: start: 20110929
  8. MAGMITT [Concomitant]
     Route: 065
  9. LEVOFLOXACIN [Concomitant]
     Route: 065
     Dates: start: 20110913
  10. VIDAZA [Suspect]
     Route: 041
     Dates: start: 20111130, end: 20111204
  11. VIDAZA [Suspect]
     Dosage: 25 MILLIGRAM/SQ. METER
     Route: 041
     Dates: start: 20120117, end: 20120121
  12. LOSARTAN POTASSIUM AND HYDROCHLOROTHIAZIDE [Concomitant]
     Route: 065
  13. NEUTROGIN [Concomitant]
     Route: 065
     Dates: start: 20111205, end: 20111206

REACTIONS (3)
  - WHITE BLOOD CELL COUNT DECREASED [None]
  - BLAST CELL COUNT INCREASED [None]
  - FEBRILE NEUTROPENIA [None]
